FAERS Safety Report 9214984 (Version 3)
Quarter: 2013Q3

REPORT INFORMATION
  Report Type: Report from Study
  Country: US (occurrence: US)
  Receive Date: 20130405
  Receipt Date: 20130717
  Transmission Date: 20140515
  Serious: Yes (Hospitalization)
  Sender: FDA-Public Use
  Company Number: US-ALEXION-A201300617

PATIENT
  Age: 13 Year
  Sex: Male
  Weight: 30.8 kg

DRUGS (11)
  1. SOLIRIS 300MG [Suspect]
     Indication: HAEMOLYTIC URAEMIC SYNDROME
     Dosage: 600 MG, QW X 3 WKS
     Route: 042
     Dates: start: 20111104, end: 201111
  2. SOLIRIS 300MG [Suspect]
     Dosage: 600 MG, Q2W
     Route: 042
     Dates: start: 20111202
  3. LISINOPRIL [Concomitant]
     Dosage: 2.5 MG, QD
     Route: 048
     Dates: start: 20110713
  4. HYDROXYZINE [Concomitant]
     Dosage: 10-20 MG Q6H, PRN
     Route: 048
     Dates: start: 20130214
  5. FLUOXETINE [Concomitant]
     Dosage: 20 MG, QD
     Dates: start: 20121026
  6. CLONIDINE HCL [Concomitant]
     Dosage: 0.1 MG, QD
     Route: 048
     Dates: start: 20110713
  7. ARANESP [Concomitant]
     Dosage: 0.5 ML, Q6WKS
     Route: 058
     Dates: start: 20100922
  8. IRON [Concomitant]
     Dosage: 325, QD
     Route: 048
  9. COREG [Concomitant]
     Dosage: 12.5 MG, BID
     Route: 048
  10. CALCITRIOL [Concomitant]
     Dosage: 0.25 MCG, MON, WED, FRI
     Route: 048
  11. TUMS E-X [Concomitant]
     Dosage: 750 MG, TID WITH MEALS

REACTIONS (10)
  - Staphylococcal infection [Recovered/Resolved]
  - Renal failure acute [Recovered/Resolved]
  - Renal disorder [Recovered/Resolved]
  - Condition aggravated [Recovered/Resolved]
  - Hypertension [Recovered/Resolved]
  - Malaise [Not Recovered/Not Resolved]
  - Urticaria [Not Recovered/Not Resolved]
  - Pruritus [Not Recovered/Not Resolved]
  - Throat irritation [Recovered/Resolved]
  - Decreased appetite [Not Recovered/Not Resolved]
